FAERS Safety Report 7328736-3 (Version None)
Quarter: 2011Q1

REPORT INFORMATION
  Report Type: 
  Country: None (occurrence: None)
  Receive Date: 20110303
  Receipt Date: 20110217
  Transmission Date: 20110831
  Serious: Yes (Other)
  Sender: FDA-Public Use
  Company Number: PHHY2011FR03795

PATIENT
  Sex: Female

DRUGS (8)
  1. COUMADIN [Concomitant]
     Indication: ATRIAL FIBRILLATION
     Dosage: 4 MG DAILY
     Route: 048
     Dates: start: 20101101
  2. LEVOTHYROXINE SODIUM [Concomitant]
     Indication: HYPOTHYROIDISM
     Dosage: 50 UG DAILY
     Route: 048
     Dates: start: 20101107
  3. ACETAMINOPHEN AND TRAMADOL HCL [Suspect]
     Dosage: 37.5 MG DAILY
     Dates: start: 20101207, end: 20101209
  4. LASIX [Concomitant]
     Indication: HYPERTENSION
     Dosage: 40 MG DAILY
     Route: 048
     Dates: start: 20101101
  5. EXELON [Suspect]
     Dosage: 4.6 MG, QD
     Route: 062
     Dates: start: 20101215, end: 20101215
  6. EXELON [Suspect]
     Indication: DEMENTIA WITH LEWY BODIES
     Dosage: 4.6 MG, QD
     Route: 062
     Dates: start: 20101210, end: 20101210
  7. ESCITALOPRAM [Suspect]
     Dosage: 10 MG DAILY
     Dates: start: 20101101, end: 20101210
  8. TRIATEC [Concomitant]
     Indication: HYPERTENSION
     Dosage: 5 MG DAILY
     Route: 048
     Dates: start: 20101101

REACTIONS (2)
  - SOMNOLENCE [None]
  - DYSKINESIA [None]
